FAERS Safety Report 25287714 (Version 1)
Quarter: 2025Q2

REPORT INFORMATION
  Report Type: Spontaneous
  Country: US (occurrence: US)
  Receive Date: 20250509
  Receipt Date: 20250509
  Transmission Date: 20250717
  Serious: Yes (Other)
  Sender: PFIZER
  Company Number: US-PFIZER INC-202500096670

PATIENT
  Age: 29 Year
  Sex: Female
  Weight: 63.5 kg

DRUGS (1)
  1. DEPO-PROVERA [Suspect]
     Active Substance: MEDROXYPROGESTERONE ACETATE
     Indication: Contraception
     Dosage: MONTHLY (ONCE A MONTH)
     Dates: start: 1992, end: 2004

REACTIONS (7)
  - Cervix carcinoma [Unknown]
  - Breast cancer [Unknown]
  - Lymphoma [Unknown]
  - Metastases to central nervous system [Unknown]
  - Visual impairment [Unknown]
  - Hypoacusis [Unknown]
  - Off label use [Unknown]

NARRATIVE: CASE EVENT DATE: 19920101
